FAERS Safety Report 5765931-9 (Version None)
Quarter: 2008Q2

REPORT INFORMATION
  Report Type: 
  Country: None (occurrence: None)
  Receive Date: 20080611
  Receipt Date: 20070808
  Transmission Date: 20081010
  Serious: No
  Sender: FDA-Public Use
  Company Number: US-BRISTOL-MYERS SQUIBB COMPANY-13872833

PATIENT
  Sex: Male
  Weight: 65 kg

DRUGS (8)
  1. SINEMET [Suspect]
     Indication: MOVEMENT DISORDER
     Route: 048
     Dates: start: 20030701
  2. COZAAR [Interacting]
  3. ASPIRIN [Interacting]
  4. TRUSOPT [Concomitant]
  5. TRAVATAN [Concomitant]
  6. FLOMAX [Concomitant]
  7. VITAMIN B-12 [Concomitant]
  8. TYLENOL [Concomitant]

REACTIONS (5)
  - DRUG INTERACTION [None]
  - EPISTAXIS [None]
  - GAIT DISTURBANCE [None]
  - MUSCULOSKELETAL STIFFNESS [None]
  - RASH [None]
